FAERS Safety Report 5377768-3 (Version None)
Quarter: 2007Q2

REPORT INFORMATION
  Report Type: 
  Country: None (occurrence: None)
  Receive Date: 20070629
  Receipt Date: 20070626
  Transmission Date: 20071010
  Serious: Yes (Hospitalization)
  Sender: FDA-Public Use
  Company Number: THQ2007A00429

PATIENT
  Age: 34 Year
  Sex: Female

DRUGS (4)
  1. LANSOPRAZOLE [Suspect]
     Dosage: PER ORAL
     Route: 048
     Dates: start: 20070301
  2. DI-ANTALVIC (DI-GESIC /00016701/) (CAPSULES) [Suspect]
     Indication: PAIN
     Dosage: UT PER ORAL
     Route: 048
     Dates: start: 20070416, end: 20070416
  3. NAPROXEN SODIUM [Suspect]
     Dosage: 1.1 G PER ORAL
     Route: 048
     Dates: start: 20070412, end: 20070416
  4. DEROXAT (PAROXETINE HYDROCHLORIDE) [Concomitant]

REACTIONS (20)
  - ACIDOSIS [None]
  - AGRANULOCYTOSIS [None]
  - ANAEMIA [None]
  - AXILLARY PAIN [None]
  - BETA HAEMOLYTIC STREPTOCOCCAL INFECTION [None]
  - BLOOD CULTURE POSITIVE [None]
  - DEVICE RELATED INFECTION [None]
  - DIALYSIS [None]
  - DISSEMINATED INTRAVASCULAR COAGULATION [None]
  - DRUG TOXICITY [None]
  - FALL [None]
  - HAEMORRHAGIC OVARIAN CYST [None]
  - INCORRECT DOSE ADMINISTERED [None]
  - LYMPHADENOPATHY [None]
  - NEUTROPENIA [None]
  - RENAL FAILURE ACUTE [None]
  - SEPSIS [None]
  - SHOCK [None]
  - WHITE BLOOD CELL COUNT DECREASED [None]
  - WOUND [None]
